FAERS Safety Report 21104969 (Version 1)
Quarter: 2022Q3

REPORT INFORMATION
  Report Type: Spontaneous
  Country: ES (occurrence: ES)
  Receive Date: 20220720
  Receipt Date: 20220720
  Transmission Date: 20221027
  Serious: Yes (Hospitalization)
  Sender: FDA-Public Use
  Company Number: None

PATIENT

DRUGS (10)
  1. BUPRENORPHINE HYDROCHLORIDE [Suspect]
     Active Substance: BUPRENORPHINE HYDROCHLORIDE
     Indication: Back pain
     Dosage: 0.2 MILLIGRAM, Q3D
     Route: 060
     Dates: start: 20220628, end: 20220702
  2. BUPRENORPHINE [Suspect]
     Active Substance: BUPRENORPHINE
     Indication: Back pain
     Dosage: 35 MICROGRAM, Q72H (35 MICROGRAMS/H, TRANSDERMAL PATCH, 5 PATCHES)
     Route: 062
     Dates: start: 20220628, end: 20220702
  3. OLANZAPINE STADA [Concomitant]
     Indication: Product used for unknown indication
     Dosage: 1.25 MILLIGRAM, QD (2.5 MG FILM COATED TABLETS EFG, 28 TABLETS)
     Route: 048
     Dates: start: 20190328
  4. LORMETAZEPAM [Concomitant]
     Active Substance: LORMETAZEPAM
     Indication: Product used for unknown indication
     Dosage: 2 MILLIGRAM, QD (2 MG EFG TABLETS, 20 TABLETS)
     Route: 048
     Dates: start: 20121024
  5. ATORVASTATIN [Concomitant]
     Active Substance: ATORVASTATIN
     Indication: Dyslipidaemia
     Dosage: 40 MILLIGRAM, QD
     Route: 048
     Dates: start: 20130507
  6. SINTROM [Concomitant]
     Active Substance: ACENOCOUMAROL
     Indication: Atrial fibrillation
     Dosage: 4 MILLIGRAM, UNKNOWN (20 TABLETS)
     Route: 048
     Dates: start: 20150603
  7. CLOMETHIAZOLE EDISYLATE [Concomitant]
     Active Substance: CLOMETHIAZOLE EDISYLATE
     Indication: Product used for unknown indication
     Dosage: 192 MILLIGRAM, QD (SOFT CAPSULES, 30 CAPSULES)
     Route: 048
     Dates: start: 20160607
  8. FLUOXETINE HYDROCHLORIDE [Concomitant]
     Active Substance: FLUOXETINE HYDROCHLORIDE
     Indication: Product used for unknown indication
     Dosage: 50 MILLIGRAM, QD (100 MG FILM COATED TABLETS , 30 TABLETS)
     Route: 048
     Dates: start: 20120320
  9. MIRTAZAPINE [Concomitant]
     Active Substance: MIRTAZAPINE
     Indication: Product used for unknown indication
     Dosage: 15 MILLIGRAM, QD (5 MG FILM COATED TABLETS EFG, 60 TABLETS)
     Route: 048
     Dates: start: 20120830
  10. LAMOTRIGINE [Concomitant]
     Active Substance: LAMOTRIGINE
     Indication: Product used for unknown indication
     Dosage: 150 MILLIGRAM, QD (50 MG DISPERSIBLE TABLET EFG, 56 TABLETS)
     Route: 048
     Dates: start: 20120405

REACTIONS (2)
  - Disorientation [Recovering/Resolving]
  - Dysarthria [Recovering/Resolving]

NARRATIVE: CASE EVENT DATE: 20220702
